FAERS Safety Report 17812383 (Version 1)
Quarter: 2020Q2

REPORT INFORMATION
  Report Type: Spontaneous
  Country: US (occurrence: US)
  Receive Date: 20200521
  Receipt Date: 20200521
  Transmission Date: 20200714
  Serious: Yes (Hospitalization)
  Sender: FDA-Public Use
  Company Number: None

PATIENT
  Age: 56 Year
  Sex: Female
  Weight: 138.1 kg

DRUGS (3)
  1. CYCLOPHOSPHAMIDE (26271) [Suspect]
     Active Substance: CYCLOPHOSPHAMIDE
     Dates: end: 20200402
  2. DOXORUBICIN HYDROCHLORIDE. [Suspect]
     Active Substance: DOXORUBICIN HYDROCHLORIDE
     Dates: end: 20200402
  3. TAXOL [Suspect]
     Active Substance: PACLITAXEL
     Dates: end: 20200430

REACTIONS (9)
  - Pulmonary embolism [None]
  - Troponin increased [None]
  - Dyspnoea [None]
  - Deep vein thrombosis [None]
  - Chest pain [None]
  - Brain natriuretic peptide increased [None]
  - Electrocardiogram ST-T segment abnormal [None]
  - Chest discomfort [None]
  - Thrombosis [None]

NARRATIVE: CASE EVENT DATE: 20200507
